FAERS Safety Report 17251176 (Version 4)
Quarter: 2020Q3

REPORT INFORMATION
  Report Type: Report from Study
  Country: US (occurrence: US)
  Receive Date: 20200109
  Receipt Date: 20200710
  Transmission Date: 20201102
  Serious: Yes (Other)
  Sender: FDA-Public Use
  Company Number: US-ROCHE-2475572

PATIENT
  Age: 54 Year
  Sex: Female
  Weight: 60.84 kg

DRUGS (14)
  1. VITAMIN C [Concomitant]
     Active Substance: ASCORBIC ACID
     Route: 048
  2. COQ 10 [Concomitant]
     Active Substance: UBIDECARENONE
     Route: 048
  3. CRANBERRY [VACCINIUM SPP.] [Concomitant]
     Route: 048
  4. OCREVUS [Suspect]
     Active Substance: OCRELIZUMAB
     Route: 042
  5. ACYCLOVIR [ACICLOVIR] [Concomitant]
     Active Substance: ACYCLOVIR
     Indication: HERPES VIRUS INFECTION
     Route: 061
  6. FISH OIL [Concomitant]
     Active Substance: FISH OIL
     Route: 048
  7. OCREVUS [Suspect]
     Active Substance: OCRELIZUMAB
     Indication: RELAPSING MULTIPLE SCLEROSIS
     Route: 042
     Dates: start: 20190416
  8. LEXAPRO [Concomitant]
     Active Substance: ESCITALOPRAM OXALATE
     Indication: ANXIETY
     Route: 048
  9. BABY ASPIRIN [Concomitant]
     Active Substance: ASPIRIN
     Indication: BLOOD DISORDER
     Route: 048
  10. LEXAPRO [Concomitant]
     Active Substance: ESCITALOPRAM OXALATE
     Indication: DEPRESSION
  11. VITAMIN A [RETINOL] [Concomitant]
     Active Substance: RETINOL
     Route: 048
  12. NAPROXEN. [Concomitant]
     Active Substance: NAPROXEN
  13. VALTREX [Concomitant]
     Active Substance: VALACYCLOVIR HYDROCHLORIDE
     Indication: HERPES VIRUS INFECTION
     Dosage: 2 TABS FOLLOWED BY ANOTHER 2 TABS 12 HOURS APART
     Route: 048
  14. TAURINE [Concomitant]
     Active Substance: TAURINE
     Route: 048

REACTIONS (23)
  - Upper respiratory tract infection [Not Recovered/Not Resolved]
  - Delirium [Recovered/Resolved]
  - Sinusitis [Recovered/Resolved]
  - Asthenia [Recovered/Resolved]
  - Intervertebral disc protrusion [Not Recovered/Not Resolved]
  - Hypoaesthesia [Unknown]
  - Infection [Recovered/Resolved]
  - Bruxism [Unknown]
  - Gingival erosion [Unknown]
  - Cough [Not Recovered/Not Resolved]
  - Vomiting [Recovered/Resolved]
  - Herpes simplex [Unknown]
  - Trigeminal nerve disorder [Recovered/Resolved]
  - Multiple sclerosis relapse [Recovered/Resolved]
  - Pain [Unknown]
  - Stress [Unknown]
  - Seasonal allergy [Unknown]
  - Lymphocyte count decreased [Unknown]
  - Neuritis [Unknown]
  - Productive cough [Unknown]
  - Road traffic accident [Unknown]
  - Tooth infection [Recovered/Resolved]
  - Nausea [Recovered/Resolved]

NARRATIVE: CASE EVENT DATE: 20190416
